FAERS Safety Report 8382446-2 (Version None)
Quarter: 2012Q2

REPORT INFORMATION
  Report Type: 
  Country: None (occurrence: None)
  Receive Date: 20120524
  Receipt Date: 20120521
  Transmission Date: 20120825
  Serious: No
  Sender: FDA-Public Use
  Company Number: PHHY2012BR042583

PATIENT
  Age: 81 Year
  Sex: Female

DRUGS (1)
  1. HYDERGINE [Suspect]
     Indication: TINNITUS
     Dosage: UNK

REACTIONS (1)
  - TINNITUS [None]
